FAERS Safety Report 8710915 (Version 3)
Quarter: 2012Q4

REPORT INFORMATION
  Report Type: 
  Country: HU (occurrence: HU)
  Receive Date: 20120807
  Receipt Date: 20121219
  Transmission Date: 20130627
  Serious: Yes (Other)
  Sender: FDA-Public Use
  Company Number: HU-US-EMD SERONO, INC.-7151105

PATIENT
  Age: 36 None
  Sex: Female

DRUGS (1)
  1. REBIF [Suspect]
     Indication: MULTIPLE SCLEROSIS
     Route: 058
     Dates: start: 2003, end: 201205

REACTIONS (3)
  - Demyelination [Unknown]
  - Weight decreased [Recovered/Resolved]
  - Injection site dermatitis [Recovering/Resolving]
